FAERS Safety Report 8536879-1 (Version None)
Quarter: 2012Q3

REPORT INFORMATION
  Report Type: 
  Country: None (occurrence: None)
  Receive Date: 20120725
  Receipt Date: 20120723
  Transmission Date: 20120928
  Serious: Yes (Other)
  Sender: FDA-Public Use
  Company Number: JP-PFIZER INC-2012161914

PATIENT
  Age: 57 Year
  Sex: Male

DRUGS (2)
  1. TOLTERODINE TARTRATE [Suspect]
     Dosage: 2 MG, 2 CAPSULES 2X/DAY
     Route: 048
  2. TOLTERODINE TARTRATE [Suspect]
     Dosage: 2 MG, ONE CAPSULE 1X/DAY
     Route: 048

REACTIONS (2)
  - DIPLOPIA [None]
  - VISION BLURRED [None]
